FAERS Safety Report 8502796 (Version 4)
Quarter: 2015Q3

REPORT INFORMATION
  Report Type: Spontaneous
  Country: US (occurrence: US)
  Receive Date: 20120410
  Receipt Date: 20150716
  Transmission Date: 20151125
  Serious: Yes (Hospitalization, Disabling, Other)
  Sender: FDA-Public Use
  Company Number: US-MERCK-1204USA00493

PATIENT
  Sex: Female
  Weight: 68.9 kg

DRUGS (15)
  1. ONE-A-DAY ESSENTIAL VITAMINS [Concomitant]
     Indication: ROUTINE HEALTH MAINTENANCE
     Dosage: UNK
     Route: 048
  2. FOSAMAX PLUS D [Suspect]
     Active Substance: ALENDRONATE SODIUM\CHOLECALCIFEROL
     Indication: PRODUCT USED FOR UNKNOWN INDICATION
     Route: 048
  3. ERGOCALCIFEROL. [Concomitant]
     Active Substance: ERGOCALCIFEROL
     Indication: ROUTINE HEALTH MAINTENANCE
     Dosage: UNK
     Route: 065
  4. FOSAMAX [Suspect]
     Active Substance: ALENDRONATE SODIUM
     Indication: PRODUCT USED FOR UNKNOWN INDICATION
     Dosage: UNKNOWN
     Route: 048
  5. CHONDROITIN SULFATE SODIUM (+) GLUCOSAMINE SULFATE [Concomitant]
     Indication: ROUTINE HEALTH MAINTENANCE
     Dosage: UNK
     Route: 065
  6. BONIVA [Suspect]
     Active Substance: IBANDRONATE SODIUM
     Indication: OSTEOPENIA
     Dosage: UNKNOWN
     Route: 065
     Dates: start: 20050701, end: 20110304
  7. ESTRADIOL. [Concomitant]
     Active Substance: ESTRADIOL
     Indication: MENOPAUSAL SYMPTOMS
     Dosage: UNK
     Dates: start: 1998, end: 200912
  8. ZOMETA [Suspect]
     Active Substance: ZOLEDRONIC ACID
     Indication: PRODUCT USED FOR UNKNOWN INDICATION
     Route: 065
  9. OMEGA-3 MARINE TRIGLYCERIDES [Concomitant]
     Active Substance: FISH OIL
     Indication: ROUTINE HEALTH MAINTENANCE
     Dosage: UNK
     Route: 065
  10. RECLAST [Suspect]
     Active Substance: ZOLEDRONIC ACID
     Indication: PRODUCT USED FOR UNKNOWN INDICATION
     Route: 065
  11. ALENDRONATE SODIUM. [Suspect]
     Active Substance: ALENDRONATE SODIUM
     Indication: PRODUCT USED FOR UNKNOWN INDICATION
     Route: 048
  12. ASCORBIC ACID. [Concomitant]
     Active Substance: ASCORBIC ACID
     Indication: ROUTINE HEALTH MAINTENANCE
     Dosage: UNK
     Route: 065
  13. CALCIUM (UNSPECIFIED) [Concomitant]
     Active Substance: CALCIUM
     Indication: ROUTINE HEALTH MAINTENANCE
     Dosage: UNK
     Route: 065
  14. PROMETRIUM [Concomitant]
     Active Substance: PROGESTERONE
     Indication: MENOPAUSAL SYMPTOMS
     Dosage: UNK
     Route: 065
     Dates: start: 1998, end: 200912
  15. CENESTIN [Concomitant]
     Active Substance: ESTROGENS, CONJUGATED SYNTHETIC A
     Indication: MENOPAUSAL SYMPTOMS
     Dosage: UNK
     Dates: start: 1998, end: 200912

REACTIONS (29)
  - Bone disorder [Unknown]
  - Chest pain [Recovered/Resolved]
  - Meniscus injury [Unknown]
  - Arthroscopy [Unknown]
  - Ligament rupture [Unknown]
  - Ligament operation [Unknown]
  - Constipation [Not Recovered/Not Resolved]
  - Asthenia [Recovering/Resolving]
  - Fracture nonunion [Unknown]
  - Blood cholesterol increased [Unknown]
  - Musculoskeletal pain [Unknown]
  - Liver function test abnormal [Unknown]
  - Dyspnoea [Unknown]
  - Gastrooesophageal reflux disease [Not Recovered/Not Resolved]
  - Fatigue [Recovering/Resolving]
  - Hyponatraemia [Recovered/Resolved]
  - Anaemia postoperative [Unknown]
  - Fall [Unknown]
  - Intramedullary rod insertion [Unknown]
  - Breast cancer [Unknown]
  - Osteoporosis [Unknown]
  - Hypertension [Not Recovered/Not Resolved]
  - Nausea [Recovering/Resolving]
  - Gait disturbance [Unknown]
  - Hypokalaemia [Recovered/Resolved]
  - Anxiety [Unknown]
  - Femur fracture [Unknown]
  - Aspergillus infection [Unknown]
  - Calculus bladder [Unknown]

NARRATIVE: CASE EVENT DATE: 200409
